FAERS Safety Report 8216817-1 (Version None)
Quarter: 2012Q1

REPORT INFORMATION
  Report Type: 
  Country: None (occurrence: None)
  Receive Date: 20120316
  Receipt Date: 20120312
  Transmission Date: 20120608
  Serious: Yes (Death)
  Sender: FDA-Public Use
  Company Number: FR-MERCK-1203USA01709

PATIENT
  Age: 53 Year
  Sex: Female

DRUGS (12)
  1. TOBRAMYCIN [Suspect]
     Route: 042
     Dates: start: 20111224, end: 20120112
  2. PREDNISONE TAB [Concomitant]
     Route: 065
  3. ASPIRIN [Concomitant]
     Route: 065
  4. VANCOMYCIN [Suspect]
     Route: 042
     Dates: start: 20111219, end: 20120112
  5. ATORVASTATIN [Concomitant]
     Route: 065
  6. CEFTAZIDIME [Suspect]
     Route: 042
     Dates: start: 20111224, end: 20120112
  7. PROPRANOLOL [Concomitant]
     Route: 065
  8. RAMIPRIL [Concomitant]
     Route: 065
  9. INSULIN [Concomitant]
     Route: 065
  10. CLONAZEPAM [Concomitant]
     Route: 065
  11. CANCIDAS [Suspect]
     Route: 042
     Dates: start: 20111227, end: 20120112
  12. AMBISOME [Suspect]
     Route: 065
     Dates: start: 20120104, end: 20120112

REACTIONS (1)
  - THROMBOCYTOPENIA [None]
